FAERS Safety Report 6791178-3 (Version None)
Quarter: 2010Q2

REPORT INFORMATION
  Report Type: 
  Country: None (occurrence: None)
  Receive Date: 20100624
  Receipt Date: 20100609
  Transmission Date: 20101027
  Serious: Yes (Other)
  Sender: FDA-Public Use
  Company Number: JP-BRISTOL-MYERS SQUIBB COMPANY-14614887

PATIENT
  Age: 54 Year
  Sex: Female

DRUGS (3)
  1. MITOMYCIN [Suspect]
     Indication: ANAL CANCER
     Dosage: INJECTION;04AUG2008-04AUG2008;14MG/BODY/DAY BOLUS IV(DAY 1).
     Route: 042
     Dates: start: 20080804, end: 20080804
  2. FLUOROURACIL [Suspect]
     Indication: ANAL CANCER
     Dosage: 5FU INJ 250 KYOWA DR;04AUG-04AUG2008;1400MG/BODY/DAY 24HR CONTINUOUS IV INF(DAY1-4).
     Route: 041
     Dates: start: 20080804, end: 20080804
  3. RADIOTHERAPY [Suspect]
     Indication: ANAL CANCER
     Dosage: 1 DOSAGE FORM= 1.5 GY (5 TIMES PER WEEK, TOTAL RADIATION DOSAGE 40.5 GY).RECEIVED ONLY 33GY;PELVIS
     Dates: start: 20080804

REACTIONS (5)
  - BONE MARROW FAILURE [None]
  - DECREASED APPETITE [None]
  - DIARRHOEA [None]
  - ERYTHEMA MULTIFORME [None]
  - URTICARIA [None]
